FAERS Safety Report 8782607 (Version 1)
Quarter: 2012Q4

REPORT INFORMATION
  Report Type: 
  Country: US (occurrence: US)
  Receive Date: 20120913
  Receipt Date: 20120913
  Transmission Date: 20130627
  Serious: No
  Sender: FDA-Public Use
  Company Number: US-VERTEX PHARMACEUTICAL INC.-AE-2012-010618

PATIENT
  Age: 65 Year
  Sex: Male
  Weight: 109.9 kg

DRUGS (4)
  1. INCIVEK [Suspect]
     Indication: HEPATITIS C
     Route: 048
     Dates: start: 20120613
  2. RIBAVIRIN [Concomitant]
     Indication: HEPATITIS C
     Dates: start: 20120613
  3. PEGASYS [Concomitant]
     Indication: HEPATITIS C
     Route: 058
     Dates: start: 20120612
  4. COUMADIN [Concomitant]

REACTIONS (3)
  - Abdominal pain upper [Recovered/Resolved]
  - Anal pruritus [Not Recovered/Not Resolved]
  - Pruritus [Recovered/Resolved]
